FAERS Safety Report 14068111 (Version 1)
Quarter: 2017Q4

REPORT INFORMATION
  Report Type: Spontaneous
  Country: US (occurrence: US)
  Receive Date: 20171010
  Receipt Date: 20171010
  Transmission Date: 20180321
  Serious: Yes (Hospitalization)
  Sender: FDA-Public Use
  Company Number: US-UNITED THERAPEUTICS-UNT-2017-013940

PATIENT
  Age: 74 Year
  Sex: Female
  Weight: 53.61 kg

DRUGS (2)
  1. REMODULIN [Suspect]
     Active Substance: TREPROSTINIL
     Indication: PULMONARY HYPERTENSION
     Dosage: 0.067 ?G/KG, CONTINUING
     Route: 058
     Dates: start: 20161031
  2. SILDENAFIL CITRATE. [Concomitant]
     Active Substance: SILDENAFIL CITRATE
     Indication: PRODUCT USED FOR UNKNOWN INDICATION

REACTIONS (4)
  - Overdose [Recovered/Resolved]
  - Malabsorption from administration site [Unknown]
  - Drug dose omission [Unknown]
  - Device dislocation [Unknown]

NARRATIVE: CASE EVENT DATE: 20170925
